FAERS Safety Report 10130498 (Version 1)
Quarter: 2014Q2

REPORT INFORMATION
  Report Type: Spontaneous
  Country: AU (occurrence: AU)
  Receive Date: 20140428
  Receipt Date: 20140428
  Transmission Date: 20141212
  Serious: Yes (Hospitalization)
  Sender: FDA-Public Use
  Company Number: AU-BANPHARM-20142584

PATIENT
  Age: 43 Year
  Sex: Male

DRUGS (2)
  1. NUROFEN [Suspect]
     Indication: RHINITIS
     Route: 048
  2. SUDAFED [Concomitant]
     Indication: RHINITIS

REACTIONS (1)
  - Acute generalised exanthematous pustulosis [Recovered/Resolved]
